FAERS Safety Report 16988181 (Version 1)
Quarter: 2019Q4

REPORT INFORMATION
  Report Type: Spontaneous
  Country: US (occurrence: US)
  Receive Date: 20191104
  Receipt Date: 20191104
  Transmission Date: 20200122
  Serious: No
  Sender: FDA-Public Use
  Company Number: US-AUROBINDO-AUR-APL-2019-059579

PATIENT
  Age: 80 Year
  Sex: Female

DRUGS (1)
  1. ESCITALOPRAM TABLETS USP 10MG [Suspect]
     Active Substance: ESCITALOPRAM OXALATE
     Indication: DEPRESSION
     Dosage: 1 TABLET, ONCE A DAY
     Route: 065
     Dates: start: 201801

REACTIONS (3)
  - Tendon pain [Unknown]
  - Restless legs syndrome [Unknown]
  - Muscle rigidity [Unknown]
